FAERS Safety Report 6154363-X (Version None)
Quarter: 2009Q2

REPORT INFORMATION
  Report Type: 
  Country: None (occurrence: None)
  Receive Date: 20090414
  Receipt Date: 20090408
  Transmission Date: 20091009
  Serious: Yes (Death, Other)
  Sender: FDA-Public Use
  Company Number: PHHY2009JP13603

PATIENT
  Age: 64 Year
  Sex: Male

DRUGS (4)
  1. ZOMETA [Suspect]
     Indication: METASTASES TO BONE
     Dosage: UNK
     Route: 042
     Dates: start: 20070425
  2. METHOTREXATE [Concomitant]
     Dosage: UNK
     Route: 042
     Dates: start: 20070328
  3. FLUOROURACIL [Concomitant]
     Dosage: UNK
     Route: 042
     Dates: start: 20070328
  4. HEPARIN [Concomitant]
     Dosage: UNK
     Dates: start: 20070326

REACTIONS (5)
  - ANOREXIA [None]
  - BACK PAIN [None]
  - DISSEMINATED INTRAVASCULAR COAGULATION [None]
  - HYPOCALCAEMIA [None]
  - MALAISE [None]
